FAERS Safety Report 24919783 (Version 1)
Quarter: 2025Q1

REPORT INFORMATION
  Report Type: Spontaneous
  Country: CH (occurrence: CH)
  Receive Date: 20250204
  Receipt Date: 20250204
  Transmission Date: 20250409
  Serious: No
  Sender: EXELIXIS
  Company Number: CH-BRISTOL-MYERS SQUIBB COMPANY-2023-186643

PATIENT

DRUGS (39)
  1. CABOMETYX [Suspect]
     Active Substance: CABOZANTINIB S-MALATE
     Indication: Renal cell carcinoma
  2. OPDIVO [Suspect]
     Active Substance: NIVOLUMAB
     Indication: Renal cell carcinoma
     Dates: start: 20230515
  3. OPDIVO [Suspect]
     Active Substance: NIVOLUMAB
     Dates: start: 20230530
  4. OPDIVO [Suspect]
     Active Substance: NIVOLUMAB
     Dates: start: 20230613
  5. OPDIVO [Suspect]
     Active Substance: NIVOLUMAB
     Dates: start: 20230627
  6. OPDIVO [Suspect]
     Active Substance: NIVOLUMAB
     Dates: start: 20230711
  7. OPDIVO [Suspect]
     Active Substance: NIVOLUMAB
     Dates: start: 20230725
  8. OPDIVO [Suspect]
     Active Substance: NIVOLUMAB
     Dates: start: 20230808
  9. OPDIVO [Suspect]
     Active Substance: NIVOLUMAB
     Dates: start: 20230822
  10. OPDIVO [Suspect]
     Active Substance: NIVOLUMAB
     Dates: start: 20230905
  11. OPDIVO [Suspect]
     Active Substance: NIVOLUMAB
     Dates: start: 20230919
  12. OPDIVO [Suspect]
     Active Substance: NIVOLUMAB
     Dates: start: 20231003
  13. OPDIVO [Suspect]
     Active Substance: NIVOLUMAB
     Dates: start: 20231017
  14. OPDIVO [Suspect]
     Active Substance: NIVOLUMAB
     Dates: start: 20231031
  15. OPDIVO [Suspect]
     Active Substance: NIVOLUMAB
     Dates: start: 20231114
  16. OPDIVO [Suspect]
     Active Substance: NIVOLUMAB
     Dates: start: 20231128
  17. OPDIVO [Suspect]
     Active Substance: NIVOLUMAB
     Dates: start: 20231212
  18. OPDIVO [Suspect]
     Active Substance: NIVOLUMAB
     Dates: start: 20231227
  19. OPDIVO [Suspect]
     Active Substance: NIVOLUMAB
     Dates: start: 20240111
  20. OPDIVO [Suspect]
     Active Substance: NIVOLUMAB
     Dates: start: 20240125
  21. OPDIVO [Suspect]
     Active Substance: NIVOLUMAB
     Dates: start: 20240208
  22. OPDIVO [Suspect]
     Active Substance: NIVOLUMAB
     Dates: start: 20240222
  23. OPDIVO [Suspect]
     Active Substance: NIVOLUMAB
     Dates: start: 20240307
  24. OPDIVO [Suspect]
     Active Substance: NIVOLUMAB
     Dates: start: 20240321
  25. OPDIVO [Suspect]
     Active Substance: NIVOLUMAB
     Dates: start: 20240404
  26. OPDIVO [Suspect]
     Active Substance: NIVOLUMAB
     Dates: start: 20240418
  27. OPDIVO [Suspect]
     Active Substance: NIVOLUMAB
     Dates: start: 20240502
  28. OPDIVO [Suspect]
     Active Substance: NIVOLUMAB
     Dates: start: 20240516
  29. OPDIVO [Suspect]
     Active Substance: NIVOLUMAB
     Dates: start: 20240619
  30. OPDIVO [Suspect]
     Active Substance: NIVOLUMAB
     Dates: start: 20240702
  31. OPDIVO [Suspect]
     Active Substance: NIVOLUMAB
     Dates: start: 20240716
  32. OPDIVO [Suspect]
     Active Substance: NIVOLUMAB
     Dates: start: 20240730
  33. OPDIVO [Suspect]
     Active Substance: NIVOLUMAB
     Dates: start: 20240813
  34. OPDIVO [Suspect]
     Active Substance: NIVOLUMAB
     Dates: start: 20240827
  35. OPDIVO [Suspect]
     Active Substance: NIVOLUMAB
     Dates: start: 20240910
  36. OPDIVO [Suspect]
     Active Substance: NIVOLUMAB
     Dates: start: 20241008
  37. OPDIVO [Suspect]
     Active Substance: NIVOLUMAB
     Dates: start: 20241031
  38. OPDIVO [Suspect]
     Active Substance: NIVOLUMAB
     Dates: start: 20240924
  39. OPDIVO [Suspect]
     Active Substance: NIVOLUMAB
     Dates: start: 20240604

REACTIONS (1)
  - Off label use [Unknown]
